FAERS Safety Report 6454294-1 (Version None)
Quarter: 2009Q4

REPORT INFORMATION
  Report Type: 
  Country: None (occurrence: None)
  Receive Date: 20091124
  Receipt Date: 20091111
  Transmission Date: 20100525
  Serious: Yes (Hospitalization, Other)
  Sender: FDA-Public Use
  Company Number: DE-ELI_LILLY_AND_COMPANY-DE200908005600

PATIENT
  Sex: Female
  Weight: 74 kg

DRUGS (5)
  1. CYMBALTA [Suspect]
     Indication: DIABETIC NEUROPATHY
     Dosage: 30 MG, DAILY (1/D)
     Route: 048
     Dates: start: 20090407, end: 20090413
  2. BISOPROLOL [Concomitant]
     Dosage: 10 MG, DAILY (1/D)
     Route: 048
  3. METFORMIN HCL [Concomitant]
     Indication: TYPE 2 DIABETES MELLITUS
     Dosage: 324 MG, DAILY (1/D)
     Route: 048
  4. XIPAMID [Concomitant]
     Dosage: 20 MG, DAILY (1/D)
     Route: 048
     Dates: start: 20090413, end: 20090413
  5. CARBAMAZEPINE [Concomitant]
     Indication: PAIN

REACTIONS (5)
  - ASTHENIA [None]
  - HYPOKALAEMIA [None]
  - HYPONATRAEMIA [None]
  - MALAISE [None]
  - SOMNOLENCE [None]
